FAERS Safety Report 20546466 (Version 1)
Quarter: 2022Q1

REPORT INFORMATION
  Report Type: Spontaneous
  Country: US (occurrence: None)
  Receive Date: 20220302
  Receipt Date: 20220302
  Transmission Date: 20220424
  Serious: Yes (Other)
  Sender: FDA-Public Use
  Company Number: None

PATIENT
  Age: 47 Year
  Sex: Female
  Weight: 63.9 kg

DRUGS (1)
  1. BUPRENORPHINE\NALOXONE [Suspect]
     Active Substance: BUPRENORPHINE\NALOXONE
     Indication: Drug dependence
     Dosage: FREQUENCY : 3 TIMES A DAY;?
     Route: 060

REACTIONS (14)
  - Dental caries [None]
  - Tooth loss [None]
  - Tooth fracture [None]
  - Loose tooth [None]
  - Tooth disorder [None]
  - Tooth injury [None]
  - Abscess [None]
  - Infection [None]
  - Swelling [None]
  - Mastication disorder [None]
  - Feeling abnormal [None]
  - Tooth infection [None]
  - Mental disorder [None]
  - Emotional distress [None]

NARRATIVE: CASE EVENT DATE: 20181101
